FAERS Safety Report 7377985-7 (Version None)
Quarter: 2011Q1

REPORT INFORMATION
  Report Type: 
  Country: None (occurrence: None)
  Receive Date: 20110328
  Receipt Date: 20110314
  Transmission Date: 20110831
  Serious: Yes (Hospitalization)
  Sender: FDA-Public Use
  Company Number: CA-JNJFOC-20110307293

PATIENT
  Sex: Male
  Weight: 95 kg

DRUGS (5)
  1. REMICADE [Suspect]
     Route: 042
  2. SOLU-CORTEF [Concomitant]
     Indication: PREMEDICATION
     Route: 042
  3. CORTISONE [Concomitant]
     Indication: OSTEONECROSIS
  4. REMICADE [Suspect]
     Indication: COLITIS
     Route: 042
  5. REMICADE [Suspect]
     Route: 042

REACTIONS (1)
  - HIP ARTHROPLASTY [None]
